FAERS Safety Report 14890559 (Version 2)
Quarter: 2018Q2

REPORT INFORMATION
  Report Type: Spontaneous
  Country: US (occurrence: US)
  Receive Date: 20180514
  Receipt Date: 20180618
  Transmission Date: 20180711
  Serious: Yes (Hospitalization, Other)
  Sender: FDA-Public Use
  Company Number: US-FRESENIUS KABI-FK201805620

PATIENT
  Sex: Female

DRUGS (18)
  1. DIPRIVAN [Suspect]
     Active Substance: PROPOFOL
     Dosage: UNKNOWN
     Route: 042
  2. DILAUDID [Suspect]
     Active Substance: HYDROMORPHONE HYDROCHLORIDE
     Indication: RESTLESSNESS
  3. HYDROCODONE [Suspect]
     Active Substance: HYDROCODONE
     Indication: PRODUCT USED FOR UNKNOWN INDICATION
     Route: 065
  4. DIPRIVAN [Suspect]
     Active Substance: PROPOFOL
     Indication: ANAESTHESIA
     Dosage: UNKNOWN
     Route: 042
  5. ATIVAN [Suspect]
     Active Substance: LORAZEPAM
     Indication: DELIRIUM
  6. REMIFENTANIL [Suspect]
     Active Substance: REMIFENTANIL
     Indication: PRODUCT USED FOR UNKNOWN INDICATION
     Route: 065
  7. DILAUDID [Suspect]
     Active Substance: HYDROMORPHONE HYDROCHLORIDE
     Indication: AGITATION
     Dosage: 0,4 MG
     Route: 042
  8. DILAUDID [Suspect]
     Active Substance: HYDROMORPHONE HYDROCHLORIDE
     Indication: DELIRIUM
  9. ATIVAN [Suspect]
     Active Substance: LORAZEPAM
     Indication: RESTLESSNESS
     Dosage: 0,5 MG
     Route: 048
  10. MORPHINE [Concomitant]
     Active Substance: MORPHINE
     Indication: DELIRIUM
  11. DIPHENHYDRAMINE. [Concomitant]
     Active Substance: DIPHENHYDRAMINE
     Indication: RESTLESSNESS
     Route: 042
  12. DIPHENHYDRAMINE. [Concomitant]
     Active Substance: DIPHENHYDRAMINE
     Indication: DELIRIUM
  13. MORPHINE [Concomitant]
     Active Substance: MORPHINE
     Indication: AGITATION
  14. ROCURONIUM [Suspect]
     Active Substance: ROCURONIUM BROMIDE
     Indication: PRODUCT USED FOR UNKNOWN INDICATION
     Route: 065
  15. MIDAZOLAM [Suspect]
     Active Substance: MIDAZOLAM HYDROCHLORIDE
     Indication: PRODUCT USED FOR UNKNOWN INDICATION
     Route: 065
  16. DIPHENHYDRAMINE. [Concomitant]
     Active Substance: DIPHENHYDRAMINE
     Indication: AGITATION
  17. ATIVAN [Suspect]
     Active Substance: LORAZEPAM
     Indication: AGITATION
     Dosage: 0,5 MG
     Route: 042
  18. MORPHINE [Concomitant]
     Active Substance: MORPHINE
     Indication: RESTLESSNESS
     Route: 042

REACTIONS (5)
  - Restlessness [Unknown]
  - Product use in unapproved indication [Unknown]
  - Asthenia [Unknown]
  - Agitation [Unknown]
  - Delirium [Recovered/Resolved]
